FAERS Safety Report 25076816 (Version 3)
Quarter: 2025Q2

REPORT INFORMATION
  Report Type: Spontaneous
  Country: US (occurrence: US)
  Receive Date: 20250313
  Receipt Date: 20250422
  Transmission Date: 20250716
  Serious: Yes (Hospitalization, Other)
  Sender: PFIZER
  Company Number: US-PFIZER INC-202101212334

PATIENT
  Age: 94 Year
  Sex: Female
  Weight: 63.5 kg

DRUGS (6)
  1. VYNDAMAX [Suspect]
     Active Substance: TAFAMIDIS
     Indication: Cardiac disorder
     Dosage: 61 MG, 1X/DAY
     Route: 048
     Dates: end: 20250311
  2. VYNDAMAX [Suspect]
     Active Substance: TAFAMIDIS
     Indication: Acquired ATTR amyloidosis
  3. VYNDAMAX [Suspect]
     Active Substance: TAFAMIDIS
     Indication: Amyloidosis
  4. VYNDAMAX [Suspect]
     Active Substance: TAFAMIDIS
     Indication: Aortic stenosis
  5. VYNDAMAX [Suspect]
     Active Substance: TAFAMIDIS
     Indication: Cardiac amyloidosis
  6. IRBESARTAN [Concomitant]
     Active Substance: IRBESARTAN
     Indication: Cardiac disorder
     Dosage: 300 MG, 1X/DAY

REACTIONS (5)
  - Coronary arterial stent insertion [Unknown]
  - Aortic valve replacement [Unknown]
  - Bundle branch block left [Unknown]
  - Hypertension [Unknown]
  - Dyspnoea [Not Recovered/Not Resolved]

NARRATIVE: CASE EVENT DATE: 20250301
